FAERS Safety Report 4786585-4 (Version None)
Quarter: 2005Q3

REPORT INFORMATION
  Report Type: 
  Country: None (occurrence: None)
  Receive Date: 20050927
  Receipt Date: 20050601
  Transmission Date: 20060218
  Serious: No
  Sender: FDA-Public Use
  Company Number: USA050699484

PATIENT
  Age: 6 Year
  Sex: Male
  Weight: 18 kg

DRUGS (1)
  1. STRATTERA [Suspect]
     Indication: ATTENTION DEFICIT/HYPERACTIVITY DISORDER
     Dosage: 10 MG/2X DAY
     Dates: start: 20050501

REACTIONS (7)
  - AGITATION [None]
  - CONSTIPATION [None]
  - CRYING [None]
  - ENURESIS [None]
  - HYPOTONIC URINARY BLADDER [None]
  - NASOPHARYNGITIS [None]
  - URINARY INCONTINENCE [None]
